FAERS Safety Report 21817087 (Version 1)
Quarter: 2023Q1

REPORT INFORMATION
  Report Type: Spontaneous
  Country: IT (occurrence: IT)
  Receive Date: 20230104
  Receipt Date: 20230104
  Transmission Date: 20230417
  Serious: Yes (Other)
  Sender: FDA-Public Use
  Company Number: None

PATIENT
  Age: 47 Year
  Sex: Female

DRUGS (3)
  1. VINCRISTINE SULFATE [Suspect]
     Active Substance: VINCRISTINE SULFATE
     Indication: Ganglioglioma
     Dosage: UNK
     Dates: start: 20220728
  2. PROCARBAZINE [Suspect]
     Active Substance: PROCARBAZINE
     Indication: Ganglioglioma
     Dosage: UNK
     Dates: start: 20220728
  3. LOMUSTINE [Suspect]
     Active Substance: LOMUSTINE
     Indication: Ganglioglioma
     Dosage: UNK
     Dates: start: 20220721

REACTIONS (1)
  - Thrombocytopenia [Recovered/Resolved]

NARRATIVE: CASE EVENT DATE: 20221118
